FAERS Safety Report 26160471 (Version 1)
Quarter: 2025Q4

REPORT INFORMATION
  Report Type: Spontaneous
  Country: US (occurrence: US)
  Receive Date: 20251216
  Receipt Date: 20251216
  Transmission Date: 20260117
  Serious: No
  Sender: ALEXION PHARMACEUTICALS
  Company Number: US-AstraZeneca-CH-01013627AP

PATIENT

DRUGS (2)
  1. BEVESPI AEROSPHERE [Suspect]
     Active Substance: FORMOTEROL FUMARATE\GLYCOPYRROLATE
     Indication: Chronic obstructive pulmonary disease
     Dosage: 9 MICROGRAM, BID
  2. BREZTRI [Suspect]
     Active Substance: BUDESONIDE\FORMOTEROL\GLYCOPYRROLATE
     Indication: Bronchitis
     Dosage: 160 MICROGRAM

REACTIONS (13)
  - Product dose omission issue [Unknown]
  - Dyslexia [Unknown]
  - Off label use [Unknown]
  - Oropharyngeal discomfort [Unknown]
  - Drug intolerance [Unknown]
  - Device use issue [Unknown]
  - Incorrect dose administered by device [Unknown]
  - Bronchitis [Unknown]
  - Cough [Unknown]
  - Larynx irritation [Unknown]
  - Tracheal pain [Unknown]
  - Device malfunction [Unknown]
  - Device issue [Unknown]
